FAERS Safety Report 24948806 (Version 1)
Quarter: 2025Q1

REPORT INFORMATION
  Report Type: Spontaneous
  Country: US (occurrence: None)
  Receive Date: 20250207
  Receipt Date: 20250207
  Transmission Date: 20250409
  Serious: No
  Sender: FDA-CTU
  Company Number: None

PATIENT
  Age: 63 Year
  Sex: Male
  Weight: 79.83 kg

DRUGS (1)
  1. PEGASYS [Suspect]
     Active Substance: PEGINTERFERON ALFA-2A
     Indication: Budd-Chiari syndrome
     Dosage: FREQUENCY : WEEKLY;?
     Route: 058
     Dates: start: 202405

REACTIONS (1)
  - Liver disorder [None]
